FAERS Safety Report 6939346-1 (Version None)
Quarter: 2010Q3

REPORT INFORMATION
  Report Type: 
  Country: None (occurrence: None)
  Receive Date: 20100824
  Receipt Date: 20100812
  Transmission Date: 20110219
  Serious: Yes (Hospitalization, Disabling, Other)
  Sender: FDA-Public Use
  Company Number: PHHY2010GB23060

PATIENT
  Sex: Female

DRUGS (7)
  1. TASIGNA [Suspect]
     Indication: CHRONIC MYELOID LEUKAEMIA
     Dosage: 400 MG, UNK
     Route: 048
     Dates: start: 20080430
  2. IMIQUIMOD [Concomitant]
     Indication: NECROTISING ULCERATIVE GINGIVOSTOMATITIS
     Dosage: UNK
     Route: 061
  3. CITALOPRAM HYDROBROMIDE [Concomitant]
     Indication: DEPRESSION
     Dosage: 10 MG, UNK
  4. PENICILLIN V [Concomitant]
     Dosage: 500 MG, UNK
     Dates: start: 20020601
  5. ELLESTE-DUET [Concomitant]
  6. ALENDRONIC ACID [Concomitant]
     Indication: OSTEOPOROSIS
  7. OMEPRAZOLE [Concomitant]
     Indication: DYSPEPSIA

REACTIONS (11)
  - ANOGENITAL DYSPLASIA [None]
  - CERVIX CARCINOMA STAGE III [None]
  - GRANULOMA [None]
  - HIP ARTHROPLASTY [None]
  - HYSTERECTOMY [None]
  - INFECTION [None]
  - NEOPLASM MALIGNANT [None]
  - OOPHORECTOMY BILATERAL [None]
  - OSTEONECROSIS [None]
  - VAGINAL HAEMORRHAGE [None]
  - VULVAR DYSPLASIA [None]
